FAERS Safety Report 19072685 (Version 15)
Quarter: 2022Q2

REPORT INFORMATION
  Report Type: Spontaneous
  Country: PL (occurrence: PL)
  Receive Date: 20210330
  Receipt Date: 20220531
  Transmission Date: 20220720
  Serious: Yes (Hospitalization, Other)
  Sender: FDA-Public Use
  Company Number: PL-TEVA-2021-PL-1896988

PATIENT
  Age: 46 Year
  Sex: Male

DRUGS (16)
  1. ASPIRIN [Suspect]
     Active Substance: ASPIRIN
     Indication: Cardiac failure chronic
     Dosage: 1 DOSAGE FORMS DAILY; STOPPED DATE NOT PROVIDED
     Route: 065
  2. ASPIRIN [Suspect]
     Active Substance: ASPIRIN
     Dosage: 1 DOSAGE FORMS DAILY; STOPPED DATE NOT PROVIDED
     Route: 065
  3. ATORVASTATIN [Suspect]
     Active Substance: ATORVASTATIN
     Indication: Cardiac failure chronic
     Dosage: 1 DOSAGE FORMS DAILY; STOPPED DATE NOT PROVIDED
     Route: 048
  4. RAMIPRIL [Suspect]
     Active Substance: RAMIPRIL
     Indication: Cardiac failure chronic
     Dosage: 1 DOSAGE FORMS DAILY;
     Route: 048
  5. ROSUVASTATIN [Suspect]
     Active Substance: ROSUVASTATIN
     Indication: Cardiac failure chronic
     Dosage: 1 DOSAGE FORMS DAILY; STOPPED DATE NOT PROVIDED
     Route: 048
  6. IVABRADINE [Suspect]
     Active Substance: IVABRADINE
     Indication: Cardiac failure chronic
     Dosage: 10 DOSAGE FORMS DAILY; STOPPED DATE NOT PROVIDED
     Route: 065
  7. IVABRADINE [Suspect]
     Active Substance: IVABRADINE
     Dosage: 1 DOSAGE FORMS DAILY;
     Route: 065
  8. IVABRADINE [Suspect]
     Active Substance: IVABRADINE
     Dosage: 10 DOSAGE FORMS DAILY;
     Route: 065
  9. ENTRESTO [Suspect]
     Active Substance: SACUBITRIL\VALSARTAN
     Indication: Cardiac failure chronic
     Dosage: 2 DOSAGE FORMS DAILY; 1 DOSAGE FORM=24/26MG; STOPPED DATE NOT PROVIDED
     Route: 065
     Dates: start: 20191128
  10. ENTRESTO [Suspect]
     Active Substance: SACUBITRIL\VALSARTAN
     Dosage: 2 DOSAGE FORMS DAILY; 1 DOSAGE FORM=49/51MG; STOPPED DATE NOT PROVIDED
     Route: 065
  11. ENTRESTO [Suspect]
     Active Substance: SACUBITRIL\VALSARTAN
     Dosage: 2 DOSAGE FORMS DAILY; 49MG/51MG (INCREASED DOSE)
     Route: 065
  12. ENTRESTO [Suspect]
     Active Substance: SACUBITRIL\VALSARTAN
     Dosage: 2 DF (OF 49/51MG), 2DF (OF 24/26MG) (2 DOSAGE FORMS)
     Route: 065
  13. EPLERENONE [Suspect]
     Active Substance: EPLERENONE
     Indication: Cardiac failure chronic
     Dosage: 1 DOSAGE FORMS DAILY; AT NOON; STOPPED DATE NOT PROVIDED
     Route: 065
  14. COREG [Suspect]
     Active Substance: CARVEDILOL
     Indication: Cardiac failure chronic
     Dosage: 2 DOSAGE FORMS DAILY;
     Route: 065
  15. COREG [Suspect]
     Active Substance: CARVEDILOL
     Dosage: 2 DOSAGE FORMS DAILY;
     Route: 065
  16. TORSEMIDE [Suspect]
     Active Substance: TORSEMIDE
     Indication: Cardiac failure chronic
     Dosage: 20 MILLIGRAM DAILY; STOPPED DATE NOT PROVIDED
     Route: 065

REACTIONS (7)
  - Cardiac failure [Recovered/Resolved]
  - Bradycardia [Unknown]
  - Feeling abnormal [Unknown]
  - Electrocardiogram abnormal [Unknown]
  - Computerised tomogram coronary artery abnormal [Unknown]
  - Hypotension [Unknown]
  - Overdose [Unknown]

NARRATIVE: CASE EVENT DATE: 20190522
